FAERS Safety Report 17180457 (Version 1)
Quarter: 2019Q4

REPORT INFORMATION
  Report Type: Report from Study
  Country: US (occurrence: US)
  Receive Date: 20191219
  Receipt Date: 20191219
  Transmission Date: 20200122
  Serious: Yes (Hospitalization, Other)
  Sender: FDA-Public Use
  Company Number: US-BRISTOL-MYERS SQUIBB COMPANY-BMS-2019-103196

PATIENT
  Age: 71 Year
  Sex: Male
  Weight: 55 kg

DRUGS (3)
  1. NIVOLUMAB [Suspect]
     Active Substance: NIVOLUMAB
     Indication: COLORECTAL CANCER
     Dosage: 240 MILLIGRAM, Q2WK
     Route: 065
     Dates: start: 20190318, end: 20191007
  2. OXALIPLATIN. [Suspect]
     Active Substance: OXALIPLATIN
     Indication: COLORECTAL CANCER
     Dosage: 130 MILLIGRAM, Q2WK
     Route: 065
     Dates: start: 20190318, end: 20191007
  3. FLUOROURACIL. [Suspect]
     Active Substance: FLUOROURACIL
     Indication: COLORECTAL CANCER
     Dosage: 2400 MILLIGRAM/SQ. METER
     Route: 065
     Dates: start: 20190318, end: 20191007

REACTIONS (4)
  - Acute respiratory failure [Recovered/Resolved with Sequelae]
  - Pulmonary embolism [Recovered/Resolved with Sequelae]
  - Acute kidney injury [Recovered/Resolved]
  - Pneumonitis [Recovered/Resolved with Sequelae]

NARRATIVE: CASE EVENT DATE: 20191023
